FAERS Safety Report 18941679 (Version 2)
Quarter: 2021Q1

REPORT INFORMATION
  Report Type: Report from Study
  Country: US (occurrence: US)
  Receive Date: 20210225
  Receipt Date: 20210312
  Transmission Date: 20210420
  Serious: Yes (Other)
  Sender: FDA-Public Use
  Company Number: US-UCBSA-2021007578

PATIENT
  Age: 24 Year
  Sex: Female
  Weight: 52 kg

DRUGS (5)
  1. LAMICTAL [Concomitant]
     Active Substance: LAMOTRIGINE
     Indication: PRODUCT USED FOR UNKNOWN INDICATION
     Dosage: UNK
  2. BRIVIACT [Suspect]
     Active Substance: BRIVARACETAM
     Indication: PRODUCT USED FOR UNKNOWN INDICATION
     Dosage: TAKING BRIVIACT 25MG NOW
  3. TYLENOL [Concomitant]
     Active Substance: ACETAMINOPHEN
     Indication: MIGRAINE
  4. LEVETIRACETAM. [Suspect]
     Active Substance: LEVETIRACETAM
     Indication: EPILEPSY
     Dosage: 500 MILLIGRAM, 2X/DAY (BID)
     Route: 048
  5. LEVETIRACETAM. [Suspect]
     Active Substance: LEVETIRACETAM
     Indication: SEIZURE
     Dosage: 250 MILLIGRAM (HALF TABLET OF 500 MG), ONCE DAILY (QD)
     Route: 048
     Dates: start: 201906

REACTIONS (13)
  - Irritability [Unknown]
  - Wrong technique in product usage process [Unknown]
  - Generalised tonic-clonic seizure [Unknown]
  - Insomnia [Unknown]
  - Anger [Unknown]
  - Fatigue [Unknown]
  - Disturbance in attention [Unknown]
  - Depressed mood [Unknown]
  - Feeling abnormal [Unknown]
  - Muscle spasms [Unknown]
  - Product use issue [Unknown]
  - Mood swings [Unknown]
  - Tremor [Unknown]

NARRATIVE: CASE EVENT DATE: 201906
